FAERS Safety Report 5188050-1 (Version None)
Quarter: 2006Q4

REPORT INFORMATION
  Report Type: 
  Country: None (occurrence: None)
  Receive Date: 20061221
  Receipt Date: 20020806
  Transmission Date: 20070319
  Serious: Yes (Death)
  Sender: FDA-Public Use
  Company Number: PHBS2002JP09403

PATIENT
  Age: 2 Year
  Sex: Male
  Weight: 14.4 kg

DRUGS (6)
  1. NEORAL [Suspect]
     Indication: NEPHROTIC SYNDROME
     Dosage: 20 MG/D
     Route: 048
     Dates: start: 20010213, end: 20010226
  2. RENIVACE [Suspect]
     Indication: NEPHROTIC SYNDROME
     Dosage: 3.75 MG/D
     Route: 048
     Dates: start: 20010125, end: 20010223
  3. PERDIPINE [Concomitant]
     Dosage: 0.34 MG/D
     Dates: start: 20010209, end: 20010419
  4. FLUITRAN [Concomitant]
     Dosage: 1 MG/D
     Route: 048
     Dates: start: 20010124, end: 20010409
  5. ALDACTONE [Concomitant]
     Dosage: 20 MG/D
     Route: 048
     Dates: start: 20010124, end: 20010304
  6. LASIX [Concomitant]
     Dosage: 10 MG/D
     Route: 042
     Dates: end: 20010414

REACTIONS (11)
  - BLOOD CREATININE INCREASED [None]
  - BLOOD PRESSURE DECREASED [None]
  - CARDIAC ARREST [None]
  - CARDIAC FAILURE [None]
  - CARDIAC HYPERTROPHY [None]
  - DIAPHRAGMATIC DISORDER [None]
  - HYPERTENSION [None]
  - MYOCARDITIS [None]
  - PERITONEAL DIALYSIS [None]
  - PLEURAL EFFUSION [None]
  - RENAL IMPAIRMENT [None]
